FAERS Safety Report 6610507-4 (Version None)
Quarter: 2010Q1

REPORT INFORMATION
  Report Type: 
  Country: None (occurrence: None)
  Receive Date: 20100302
  Receipt Date: 20100224
  Transmission Date: 20100710
  Serious: Yes (Life-Threatening, Other)
  Sender: FDA-Public Use
  Company Number: PHEH2010US01146

PATIENT
  Sex: Female

DRUGS (6)
  1. RECLAST [Suspect]
     Indication: OSTEOPOROSIS
     Dosage: 5 MG ONCE
     Route: 042
     Dates: start: 20100112
  2. VITAMIN D [Concomitant]
  3. CALCIUM [Concomitant]
  4. PREMARIN [Concomitant]
     Dosage: 0.625 MG DAILY
     Route: 048
  5. ALLEGRA [Concomitant]
     Dosage: 60 MG DAILY AS NEEDED
     Route: 048
  6. CALCIUM WITH VITAMIN D [Concomitant]
     Dosage: 2 TABS, DAILY

REACTIONS (25)
  - ABASIA [None]
  - ABDOMINAL DISCOMFORT [None]
  - ASTHENIA [None]
  - BLOOD PRESSURE DECREASED [None]
  - BONE PAIN [None]
  - CHILLS [None]
  - DYSPEPSIA [None]
  - DYSPNOEA [None]
  - FATIGUE [None]
  - FEELING ABNORMAL [None]
  - HEADACHE [None]
  - HEART RATE INCREASED [None]
  - HYPERTONIC BLADDER [None]
  - HYPOAESTHESIA [None]
  - MUSCULAR WEAKNESS [None]
  - MUSCULOSKELETAL PAIN [None]
  - NAUSEA [None]
  - NECK PAIN [None]
  - OEDEMA PERIPHERAL [None]
  - PALPITATIONS [None]
  - PARAESTHESIA [None]
  - PERIPHERAL COLDNESS [None]
  - POLLAKIURIA [None]
  - TREMOR [None]
  - YELLOW SKIN [None]
